FAERS Safety Report 25725257 (Version 1)
Quarter: 2025Q3

REPORT INFORMATION
  Report Type: Spontaneous
  Country: CN (occurrence: CN)
  Receive Date: 20250826
  Receipt Date: 20250826
  Transmission Date: 20251021
  Serious: Yes (Disabling)
  Sender: ASTELLAS
  Company Number: CN-ASTELLAS-2025-AER-046120

PATIENT
  Age: 38 Year
  Sex: Male

DRUGS (2)
  1. PROGRAF [Suspect]
     Active Substance: TACROLIMUS
     Indication: Prophylaxis against transplant rejection
     Route: 048
     Dates: start: 20250706, end: 20250818
  2. TACROLIMUS [Suspect]
     Active Substance: TACROLIMUS
     Indication: Prophylaxis against transplant rejection
     Route: 048
     Dates: start: 20250706, end: 20250818

REACTIONS (1)
  - Hepatic vein occlusion [Recovering/Resolving]

NARRATIVE: CASE EVENT DATE: 20250815
